FAERS Safety Report 21510488 (Version 1)
Quarter: 2022Q4

REPORT INFORMATION
  Report Type: Report from Study
  Country: CA (occurrence: CA)
  Receive Date: 20221026
  Receipt Date: 20221026
  Transmission Date: 20230112
  Serious: Yes (Other)
  Sender: FDA-Public Use
  Company Number: CA-JAZZ-2022-CA-029619

PATIENT
  Sex: Female

DRUGS (33)
  1. XYREM [Suspect]
     Active Substance: SODIUM OXYBATE
     Indication: Fibromyalgia
     Dosage: 4.5 GRAM, BID
     Route: 048
     Dates: start: 20070906, end: 2007
  2. XYREM [Suspect]
     Active Substance: SODIUM OXYBATE
     Dosage: 7.5 GRAM, BID
     Route: 048
     Dates: start: 20070920, end: 2007
  3. XYREM [Suspect]
     Active Substance: SODIUM OXYBATE
     Dosage: 7.5 GRAM, BID
     Route: 048
     Dates: start: 20071024, end: 2007
  4. XYREM [Suspect]
     Active Substance: SODIUM OXYBATE
     Dosage: 9 GRAM, BID
     Route: 048
     Dates: start: 20071110, end: 2007
  5. XYREM [Suspect]
     Active Substance: SODIUM OXYBATE
     Dosage: 10 GRAM, BID
     Route: 048
     Dates: start: 20071127, end: 2007
  6. XYREM [Suspect]
     Active Substance: SODIUM OXYBATE
     Dosage: 11 GRAM
     Route: 048
     Dates: start: 200712, end: 2008
  7. XYREM [Suspect]
     Active Substance: SODIUM OXYBATE
     Dosage: 11.25 GRAM
     Route: 048
     Dates: start: 20080101, end: 2008
  8. XYREM [Suspect]
     Active Substance: SODIUM OXYBATE
     Dosage: 11.7 GRAM
     Route: 048
     Dates: start: 20080220, end: 2008
  9. XYREM [Suspect]
     Active Substance: SODIUM OXYBATE
     Dosage: 12 GRAM, BID
     Route: 048
     Dates: start: 20080305, end: 2008
  10. XYREM [Suspect]
     Active Substance: SODIUM OXYBATE
     Dosage: 12.5 GRAM, BID
     Route: 048
     Dates: start: 20080409, end: 2008
  11. XYREM [Suspect]
     Active Substance: SODIUM OXYBATE
     Dosage: 12.75 GRAM, BID
     Route: 048
     Dates: start: 20080604, end: 2008
  12. XYREM [Suspect]
     Active Substance: SODIUM OXYBATE
     Dosage: 10 GRAM
     Route: 048
     Dates: start: 20090311, end: 2009
  13. XYREM [Suspect]
     Active Substance: SODIUM OXYBATE
     Dosage: 11 GRAM, TID
     Route: 048
     Dates: start: 20090408, end: 2009
  14. XYREM [Suspect]
     Active Substance: SODIUM OXYBATE
     Dosage: 12 GRAM, TID
     Route: 048
     Dates: start: 20090506, end: 2009
  15. XYREM [Suspect]
     Active Substance: SODIUM OXYBATE
     Dosage: 7.5 GRAM, BID (DIVIDED IN TWI EQUAL DOSES (QHS AND 2,5-4HRS AFTER 1 ST DOSE)
     Route: 048
     Dates: start: 2010, end: 20100123
  16. XYREM [Suspect]
     Active Substance: SODIUM OXYBATE
     Dosage: 7 GRAM, BID
     Route: 048
     Dates: start: 20100126, end: 2010
  17. XYREM [Suspect]
     Active Substance: SODIUM OXYBATE
     Dosage: 7.5 GRAM, BID
     Route: 048
     Dates: start: 20100130, end: 20100130
  18. XYREM [Suspect]
     Active Substance: SODIUM OXYBATE
     Dosage: 9 GRAM, BID
     Route: 048
     Dates: start: 20100131, end: 2010
  19. XYREM [Suspect]
     Active Substance: SODIUM OXYBATE
     Dosage: 8 GRAM, BID
     Route: 048
     Dates: start: 20100224, end: 20110202
  20. XYREM [Suspect]
     Active Substance: SODIUM OXYBATE
     Dosage: 4.5 GRAM, BID
     Route: 048
     Dates: start: 20120731
  21. XYREM [Suspect]
     Active Substance: SODIUM OXYBATE
     Dosage: 6 GRAM, BID
     Route: 048
     Dates: start: 20121025
  22. METHYLPHENIDATE [Concomitant]
     Active Substance: METHYLPHENIDATE
     Indication: Product used for unknown indication
     Dosage: UNK
  23. MODAFINIL [Concomitant]
     Active Substance: MODAFINIL
     Indication: Product used for unknown indication
     Dosage: 100 MILLIGRAM, BID
  24. SYNTHROID [Concomitant]
     Active Substance: LEVOTHYROXINE SODIUM
     Indication: Product used for unknown indication
     Dosage: 0.137 MILLIGRAM, QD
     Route: 048
  25. TOPIRAMATE [Concomitant]
     Active Substance: TOPIRAMATE
     Indication: Product used for unknown indication
     Dosage: 100 MILLIGRAM, BID
  26. TRAMADOL [Concomitant]
     Active Substance: TRAMADOL
     Indication: Product used for unknown indication
     Dosage: 3.75 MILLIGRAM, BID
  27. ACETAMINOPHEN\OXYCODONE HYDROCHLORIDE [Concomitant]
     Active Substance: ACETAMINOPHEN\OXYCODONE HYDROCHLORIDE
     Indication: Product used for unknown indication
     Dosage: 325 MG, PRN (A5/325 1 TAB QD PRN)
  28. ROSUVASTATIN [Concomitant]
     Active Substance: ROSUVASTATIN
     Indication: Product used for unknown indication
     Dosage: 10 MILLIGRAM, QD
  29. CIPRALEX [Concomitant]
     Active Substance: ESCITALOPRAM OXALATE
     Indication: Product used for unknown indication
     Dosage: 20 MILLIGRAM, QD
  30. VITAMINS [Concomitant]
     Active Substance: VITAMINS
     Indication: Product used for unknown indication
     Dosage: 1 DOSAGE FORM, QD
  31. VITAMIN B-COMPLEX [CYANOCOBALAMIN;PYRIDOXINE HYDROCHLORIDE;RIBOFLAVIN; [Concomitant]
     Indication: Product used for unknown indication
     Dosage: UNK UNK, QD
  32. VITAMIN D NOS [Concomitant]
     Active Substance: VITAMIN D NOS
     Indication: Product used for unknown indication
     Dosage: UNK, QD
  33. ALBUTEROL SULFATE [Concomitant]
     Active Substance: ALBUTEROL SULFATE
     Indication: Product used for unknown indication
     Dosage: UNK, PRN

REACTIONS (7)
  - Hallucination [Unknown]
  - Asthenia [Unknown]
  - Tremor [Unknown]
  - Pyrexia [Unknown]
  - Fatigue [Unknown]
  - Incorrect dose administered [Unknown]
  - Product administration interrupted [Unknown]
